FAERS Safety Report 5221491-2 (Version None)
Quarter: 2007Q1

REPORT INFORMATION
  Report Type: 
  Country: None (occurrence: None)
  Receive Date: 20070126
  Receipt Date: 20070117
  Transmission Date: 20070707
  Serious: Yes (Other)
  Sender: FDA-Public Use
  Company Number: US-PFIZER INC-2007005113

PATIENT
  Sex: Female
  Weight: 52.2 kg

DRUGS (4)
  1. NEURONTIN [Suspect]
     Indication: NEURALGIA
  2. CELEBREX [Suspect]
  3. DOMPERIDONE [Concomitant]
  4. ELIDEL [Concomitant]

REACTIONS (3)
  - ABDOMINAL PAIN UPPER [None]
  - IMPAIRED GASTRIC EMPTYING [None]
  - MEMORY IMPAIRMENT [None]
